FAERS Safety Report 8292336-1 (Version None)
Quarter: 2012Q2

REPORT INFORMATION
  Report Type: 
  Country: None (occurrence: None)
  Receive Date: 20120417
  Receipt Date: 20120409
  Transmission Date: 20120825
  Serious: Yes (Hospitalization)
  Sender: FDA-Public Use
  Company Number: US-B.I. PHARMACEUTICALS,INC./RIDGEFIELD-2012-BP-06620BP

PATIENT
  Age: 65 Year
  Sex: Female

DRUGS (9)
  1. NORCO [Concomitant]
     Indication: PROCEDURAL PAIN
  2. VALIUM [Suspect]
  3. DIGOXIN [Concomitant]
  4. SOTALOL HCL [Concomitant]
     Indication: ATRIAL FIBRILLATION
  5. PRADAXA [Suspect]
     Dosage: 300 MG
     Route: 048
     Dates: start: 20120309
  6. COUMADIN [Suspect]
     Indication: ATRIAL FIBRILLATION
     Dates: start: 20120229
  7. PRADAXA [Suspect]
     Indication: ATRIAL FIBRILLATION
     Dosage: 300 MG
     Route: 048
     Dates: start: 20120101, end: 20120227
  8. DILAUDID [Suspect]
  9. TOPAMAX [Suspect]

REACTIONS (9)
  - WHITE BLOOD CELL COUNT INCREASED [None]
  - LOSS OF CONSCIOUSNESS [None]
  - PYREXIA [None]
  - RECTAL HAEMORRHAGE [None]
  - OVERDOSE [None]
  - HAEMATOCHEZIA [None]
  - HAEMORRHAGE [None]
  - SINUSITIS [None]
  - EPISTAXIS [None]
